FAERS Safety Report 7053418-5 (Version None)
Quarter: 2010Q4

REPORT INFORMATION
  Report Type: 
  Country: None (occurrence: None)
  Receive Date: 20101014
  Receipt Date: 20101005
  Transmission Date: 20110411
  Serious: Yes (Other)
  Sender: FDA-Public Use
  Company Number: 2010SP049816

PATIENT
  Age: 57 Year
  Sex: Female

DRUGS (2)
  1. INTRON A [Suspect]
     Indication: HEPATITIS C
     Dosage: 1.5 MCG/KG; QW
  2. RIBAVIRIN [Suspect]
     Indication: HEPATITIS C

REACTIONS (4)
  - BLINDNESS UNILATERAL [None]
  - HYPOTHYROIDISM [None]
  - IRON DEFICIENCY ANAEMIA [None]
  - OPTIC NEUROPATHY [None]
